FAERS Safety Report 22660497 (Version 1)
Quarter: 2023Q2

REPORT INFORMATION
  Report Type: Spontaneous
  Country: US (occurrence: US)
  Receive Date: 20230630
  Receipt Date: 20230630
  Transmission Date: 20230722
  Serious: No
  Sender: FDA-Public Use
  Company Number: US-JAZZ PHARMACEUTICALS-2022-US-024426

PATIENT
  Sex: Male

DRUGS (1)
  1. EPIDIOLEX [Suspect]
     Active Substance: CANNABIDIOL
     Indication: Epilepsy
     Dosage: 3.5 MILLILITER (350 MG), IN THE MORNING, 4 MILLILITER (400 MG), IN THE EVENING
     Route: 048
     Dates: start: 20211204

REACTIONS (2)
  - Seizure [Unknown]
  - Off label use [Unknown]
